FAERS Safety Report 6878000-1 (Version None)
Quarter: 2010Q3

REPORT INFORMATION
  Report Type: 
  Country: None (occurrence: None)
  Receive Date: 20100727
  Receipt Date: 20100722
  Transmission Date: 20110219
  Serious: Yes (Hospitalization, Other)
  Sender: FDA-Public Use
  Company Number: DE-ROXANE LABORATORIES, INC.-2010-RO-00897RO

PATIENT
  Age: 20 Year
  Sex: Male

DRUGS (2)
  1. METHADONE HCL [Suspect]
     Indication: DRUG WITHDRAWAL MAINTENANCE THERAPY
     Route: 042
  2. DIAZEPAM [Suspect]

REACTIONS (2)
  - BACTERAEMIA [None]
  - OVERDOSE [None]
